FAERS Safety Report 20093517 (Version 1)
Quarter: 2021Q4

REPORT INFORMATION
  Report Type: Spontaneous
  Country: US (occurrence: US)
  Receive Date: 20211121
  Receipt Date: 20211121
  Transmission Date: 20220303
  Serious: No
  Sender: FDA-Public Use
  Company Number: US-SA-SAC20211117000094

PATIENT
  Sex: Female

DRUGS (1)
  1. AUBAGIO [Suspect]
     Active Substance: TERIFLUNOMIDE
     Indication: Multiple sclerosis
     Dosage: 14 MG, QD
     Route: 048
     Dates: start: 20160927

REACTIONS (7)
  - Fatigue [Unknown]
  - Fall [Unknown]
  - Muscle spasms [Unknown]
  - Abdominal pain [Unknown]
  - Nasopharyngitis [Unknown]
  - Visual impairment [Unknown]
  - Hyperhidrosis [Unknown]
